FAERS Safety Report 5166571-5 (Version None)
Quarter: 2006Q4

REPORT INFORMATION
  Report Type: 
  Country: None (occurrence: None)
  Receive Date: 20061207
  Receipt Date: 20061121
  Transmission Date: 20070319
  Serious: Yes (Other)
  Sender: FDA-Public Use
  Company Number: JP-BRISTOL-MYERS SQUIBB COMPANY-13596432

PATIENT
  Age: 3 Year
  Sex: Male

DRUGS (1)
  1. SINEMET [Suspect]
     Indication: GAIT DISTURBANCE
     Route: 048
     Dates: start: 20060801

REACTIONS (4)
  - OLIGURIA [None]
  - PRESCRIBED OVERDOSE [None]
  - URINE COLOUR ABNORMAL [None]
  - URINE ODOUR ABNORMAL [None]
